FAERS Safety Report 11155024 (Version 2)
Quarter: 2015Q3

REPORT INFORMATION
  Report Type: Spontaneous
  Country: IT (occurrence: None)
  Receive Date: 20150529
  Receipt Date: 20150909
  Transmission Date: 20151125
  Serious: Yes (Other)
  Sender: FDA-Public Use
  Company Number: ADR-2015-01035

PATIENT
  Age: 55 Year
  Sex: Female

DRUGS (2)
  1. NABIXIMOLS (SATIVEX) OROMUCOSAL SPRAY [Suspect]
     Active Substance: NABIXIMOLS
     Indication: MUSCLE SPASTICITY
     Dosage: TEN PUFFS/DAY
  2. BACLOFEN (ORAL) [Suspect]
     Active Substance: BACLOFEN
     Indication: MUSCLE SPASTICITY
     Dosage: 50MG/DAY

REACTIONS (16)
  - Suicidal ideation [None]
  - Hyperreflexia [None]
  - Psychotic behaviour [None]
  - Nuclear magnetic resonance imaging brain abnormal [None]
  - Hemiparesis [None]
  - Substance-induced mood disorder [None]
  - Cerebellar syndrome [None]
  - Bipolar I disorder [None]
  - Hypertonia [None]
  - Hypoaesthesia [None]
  - Micturition urgency [None]
  - Ataxia [None]
  - Abnormal behaviour [None]
  - Insomnia [None]
  - Muscle spasticity [None]
  - Therapeutic response decreased [None]
